FAERS Safety Report 16338357 (Version 1)
Quarter: 2019Q2

REPORT INFORMATION
  Report Type: Spontaneous
  Country: US (occurrence: US)
  Receive Date: 20190521
  Receipt Date: 20190521
  Transmission Date: 20190711
  Serious: No
  Sender: FDA-Public Use
  Company Number: US-VERTEX PHARMACEUTICALS-2019-004378

PATIENT
  Age: 34 Year
  Sex: Female

DRUGS (2)
  1. ORKAMBI [Suspect]
     Active Substance: IVACAFTOR\LUMACAFTOR
     Indication: CYSTIC FIBROSIS
     Dosage: UNK, BID
     Route: 048
     Dates: start: 20190501
  2. PREDNISONE. [Concomitant]
     Active Substance: PREDNISONE
     Dosage: 20 MG
     Route: 048

REACTIONS (6)
  - Respiratory symptom [Unknown]
  - Rash [Unknown]
  - Off label use [Unknown]
  - Anxiety [Unknown]
  - Gastrointestinal disorder [Unknown]
  - Nausea [Unknown]

NARRATIVE: CASE EVENT DATE: 201905
